FAERS Safety Report 8808532 (Version 1)
Quarter: 2012Q4

REPORT INFORMATION
  Report Type: Spontaneous
  Country: US (occurrence: None)
  Receive Date: 20120919
  Receipt Date: 20120919
  Transmission Date: 20130627
  Serious: Yes (Hospitalization, Other)
  Sender: FDA-Public Use
  Company Number: 2012MA010949

PATIENT
  Age: 4 Day
  Sex: Male

DRUGS (1)
  1. FEVERALL [Suspect]
     Indication: POST PROCEDURAL PAIN
     Route: 048

REACTIONS (17)
  - Vomiting [None]
  - Depressed level of consciousness [None]
  - Somnolence [None]
  - Dehydration [None]
  - Lethargy [None]
  - Hypoglycaemia [None]
  - Blood sodium decreased [None]
  - Blood creatinine increased [None]
  - Electrolyte imbalance [None]
  - Encephalopathy [None]
  - Drug level above therapeutic [None]
  - Toxicity to various agents [None]
  - Convulsion [None]
  - Coagulopathy [None]
  - Renal failure [None]
  - Hepatic failure [None]
  - Sepsis [None]
